FAERS Safety Report 25012089 (Version 1)
Quarter: 2025Q1

REPORT INFORMATION
  Report Type: Spontaneous
  Country: US (occurrence: US)
  Receive Date: 20250226
  Receipt Date: 20250226
  Transmission Date: 20250408
  Serious: Yes (Other)
  Sender: BAXTER
  Company Number: US-BAXTER-2023BAX015846

PATIENT
  Age: 64 Year
  Sex: Female

DRUGS (1)
  1. HEPARIN SODIUM [Suspect]
     Active Substance: HEPARIN SODIUM
     Route: 065

REACTIONS (6)
  - Vena cava thrombosis [Unknown]
  - Deep vein thrombosis [Unknown]
  - Pulmonary embolism [Unknown]
  - Heparin-induced thrombocytopenia [Unknown]
  - Dyspnoea [Unknown]
  - Platelet count decreased [Unknown]
